FAERS Safety Report 19921074 (Version 1)
Quarter: 2021Q4

REPORT INFORMATION
  Report Type: Spontaneous
  Country: CA (occurrence: CA)
  Receive Date: 20211006
  Receipt Date: 20211006
  Transmission Date: 20220303
  Serious: Yes (Other)
  Sender: FDA-Public Use
  Company Number: CA-TEVA-2021-CA-1961306

PATIENT
  Age: 6 Year
  Sex: Male

DRUGS (4)
  1. CLARITHROMYCIN [Suspect]
     Active Substance: CLARITHROMYCIN
     Indication: Otitis media bacterial
     Route: 065
  2. AMIKACIN [Suspect]
     Active Substance: AMIKACIN
     Indication: Otitis media bacterial
     Route: 065
  3. LINEZOLID [Suspect]
     Active Substance: LINEZOLID
     Indication: Otitis media bacterial
     Route: 065
  4. BORIC ACID [Concomitant]
     Active Substance: BORIC ACID
     Indication: Mycobacterium abscessus infection

REACTIONS (2)
  - Candida infection [Unknown]
  - Otitis media fungal [Unknown]
